FAERS Safety Report 8988402 (Version 1)
Quarter: 2012Q4

REPORT INFORMATION
  Report Type: Spontaneous
  Country: US (occurrence: None)
  Receive Date: 20121221
  Receipt Date: 20121221
  Transmission Date: 20130627
  Serious: Yes (Other)
  Sender: FDA-Public Use
  Company Number: None

PATIENT
  Sex: Female
  Weight: 65.77 kg

DRUGS (1)
  1. REMBRANDT 2 HOUR WHITENING KIT [Suspect]
     Dosage: Once, dental
     Dates: start: 20121201, end: 20121201

REACTIONS (1)
  - Mouth ulceration [None]
